FAERS Safety Report 6788048-3 (Version None)
Quarter: 2010Q2

REPORT INFORMATION
  Report Type: 
  Country: None (occurrence: None)
  Receive Date: 20100623
  Receipt Date: 20080216
  Transmission Date: 20101027
  Serious: No
  Sender: FDA-Public Use
  Company Number: US-PFIZER INC-2007097807

PATIENT
  Sex: Male
  Weight: 81.818 kg

DRUGS (5)
  1. SUTENT [Suspect]
     Indication: RENAL CELL CARCINOMA
     Route: 048
     Dates: start: 20071031
  2. DECADRON [Suspect]
  3. DEXAMETHASONE ACETATE [Concomitant]
     Dates: start: 20070831
  4. ATENOLOL [Concomitant]
     Dates: start: 19920101
  5. BENICAR [Concomitant]
     Indication: BLOOD PRESSURE
     Dates: start: 19920101

REACTIONS (3)
  - BODY TEMPERATURE DECREASED [None]
  - CANDIDIASIS [None]
  - MUCOSAL INFLAMMATION [None]
